FAERS Safety Report 9256864 (Version 2)
Quarter: 2014Q3

REPORT INFORMATION
  Report Type: Spontaneous
  Country: US (occurrence: None)
  Receive Date: 20130423
  Receipt Date: 20140724
  Transmission Date: 20150326
  Serious: Yes (Hospitalization, Other)
  Sender: FDA-Public Use
  Company Number: AUR-APL-2013-03221

PATIENT
  Age: 72 Year
  Sex: Male

DRUGS (5)
  1. LISINOPRIL TABLETS USP 10 MG (LISINOPRIL) TABLET, 10MG [Suspect]
     Active Substance: LISINOPRIL
     Indication: HYPERTENSION
     Dates: end: 20130226
  2. SIMVASTATIN TABLETS USP 5 MG (SIMVASTATIN) TABLET, 5MG [Suspect]
     Active Substance: SIMVASTATIN
     Indication: PRODUCT USED FOR UNKNOWN INDICATION
  3. XALKORI [Suspect]
     Active Substance: CRIZOTINIB
     Indication: LUNG ADENOCARCINOMA STAGE IV
     Dosage: 500 MG (2R0 MG, 2 IN 1 D) UNKNOWN
     Dates: start: 20130214, end: 20130226
  4. DILTIAZEM [Suspect]
     Active Substance: DILTIAZEM
     Indication: PRODUCT USED FOR UNKNOWN INDICATION
     Dosage: 240 ONE DAILY, UNKNOWN
  5. LASIX [Suspect]
     Active Substance: FUROSEMIDE
     Indication: PRODUCT USED FOR UNKNOWN INDICATION

REACTIONS (9)
  - Hypotension [None]
  - Disease progression [None]
  - Vomiting [None]
  - Vasogenic cerebral oedema [None]
  - Lung adenocarcinoma stage IV [None]
  - Renal failure acute [None]
  - Nausea [None]
  - Diarrhoea [None]
  - Dehydration [None]
